FAERS Safety Report 8438325-5 (Version None)
Quarter: 2012Q2

REPORT INFORMATION
  Report Type: 
  Country: None (occurrence: None)
  Receive Date: 20120614
  Receipt Date: 20120601
  Transmission Date: 20120825
  Serious: Yes (Death, Life-Threatening)
  Sender: FDA-Public Use
  Company Number: JP-CELGENEUS-087-21880-11022497

PATIENT
  Sex: Male

DRUGS (2)
  1. LEVEMIR [Concomitant]
     Indication: DIABETES MELLITUS
     Dosage: 10U
     Route: 058
     Dates: start: 20101025, end: 20101031
  2. REVLIMID [Suspect]
     Indication: MULTIPLE MYELOMA
     Dosage: 5 MILLIGRAM
     Route: 048
     Dates: start: 20101025, end: 20101031

REACTIONS (2)
  - FACTOR XII DEFICIENCY [None]
  - GASTROINTESTINAL HAEMORRHAGE [None]
